FAERS Safety Report 5484811-X (Version None)
Quarter: 2007Q4

REPORT INFORMATION
  Report Type: 
  Country: None (occurrence: None)
  Receive Date: 20071010
  Receipt Date: 20070926
  Transmission Date: 20080405
  Serious: Yes (Life-Threatening, Hospitalization, Other)
  Sender: FDA-Public Use
  Company Number: SPV1-2006-01587

PATIENT
  Age: 17 Year
  Sex: Male

DRUGS (10)
  1. PENTASA [Suspect]
     Indication: COLITIS ULCERATIVE
     Dosage: 750 MG, 3X/DAY:TID, ORAL; 500 MG, 3X/DAY:TID, ORAL; 750 MG, 3X/DAY:TID, ORAL
     Route: 048
     Dates: start: 20060613, end: 20060628
  2. PENTASA [Suspect]
     Indication: COLITIS ULCERATIVE
     Dosage: 750 MG, 3X/DAY:TID, ORAL; 500 MG, 3X/DAY:TID, ORAL; 750 MG, 3X/DAY:TID, ORAL
     Route: 048
     Dates: start: 20060704, end: 20060711
  3. PENTASA [Suspect]
     Indication: COLITIS ULCERATIVE
     Dosage: 750 MG, 3X/DAY:TID, ORAL; 500 MG, 3X/DAY:TID, ORAL; 750 MG, 3X/DAY:TID, ORAL
     Route: 048
     Dates: start: 20060712, end: 20060717
  4. PENTASA [Suspect]
     Indication: COLITIS ULCERATIVE
     Dosage: 1000 MG, 1X/DAY:QD, RECTAL
     Route: 054
     Dates: start: 20060714, end: 20060714
  5. CEFDINIR [Concomitant]
  6. CEFAZOLIN /00010902/ (CEFALOTIN SODIUM) [Concomitant]
  7. FAMOTIDINE [Concomitant]
  8. PREDNISONE ACETATE (PREDNISONE ACETATE) [Concomitant]
  9. AMPICILLIN SODIUM W/SULBACTRAM SODIUM (AMPICILLIN SODIUM, SULBACTAM SO [Concomitant]
  10. PREDNISONE [Concomitant]

REACTIONS (16)
  - ALANINE AMINOTRANSFERASE INCREASED [None]
  - ASPARTATE AMINOTRANSFERASE INCREASED [None]
  - BLOOD ALKALINE PHOSPHATASE INCREASED [None]
  - BLOOD AMYLASE INCREASED [None]
  - BLOOD LACTATE DEHYDROGENASE INCREASED [None]
  - C-REACTIVE PROTEIN INCREASED [None]
  - DISSEMINATED INTRAVASCULAR COAGULATION [None]
  - GAMMA-GLUTAMYLTRANSFERASE INCREASED [None]
  - HEPATIC FUNCTION ABNORMAL [None]
  - LEUKOCYTOSIS [None]
  - PURPURA [None]
  - RENAL DISORDER [None]
  - RENAL IMPAIRMENT [None]
  - THROMBOCYTOPENIA [None]
  - TOXIC EPIDERMAL NECROLYSIS [None]
  - WHITE BLOOD CELL COUNT INCREASED [None]
